FAERS Safety Report 9413709 (Version 2)
Quarter: 2013Q3

REPORT INFORMATION
  Report Type: Spontaneous
  Country: US (occurrence: US)
  Receive Date: 20130722
  Receipt Date: 20130806
  Transmission Date: 20140515
  Serious: No
  Sender: FDA-Public Use
  Company Number: US-009507513-1307USA010311

PATIENT
  Age: 59 Year
  Sex: Male

DRUGS (9)
  1. COSOPT [Suspect]
     Indication: GLAUCOMA
     Dosage: 1 DROP PER EYE TWICE A DAY
     Route: 047
  2. XALATAN [Concomitant]
     Indication: GLAUCOMA
  3. INSULIN [Concomitant]
  4. VALIUM [Concomitant]
  5. SINGULAIR [Concomitant]
  6. RANITIDINE [Concomitant]
  7. PRAVASTATIN SODIUM [Concomitant]
  8. ASPIRIN [Concomitant]
  9. GLUCOSAMINE [Concomitant]

REACTIONS (12)
  - Conjunctivitis [Recovered/Resolved]
  - Ear congestion [Unknown]
  - Eye discharge [Unknown]
  - Eye infection viral [Recovered/Resolved]
  - Pyrexia [Unknown]
  - Vomiting [Unknown]
  - Eye haemorrhage [Unknown]
  - Eye pain [Unknown]
  - Pain [Unknown]
  - Lacrimation increased [Unknown]
  - Visual impairment [Unknown]
  - Growth of eyelashes [Unknown]
